FAERS Safety Report 14682609 (Version 3)
Quarter: 2018Q2

REPORT INFORMATION
  Report Type: Report from Study
  Country: ES (occurrence: ES)
  Receive Date: 20180327
  Receipt Date: 20180416
  Transmission Date: 20180711
  Serious: Yes (Other)
  Sender: FDA-Public Use
  Company Number: ES-ROCHE-2094578

PATIENT
  Age: 52 Year
  Sex: Female

DRUGS (8)
  1. FENTANYL. [Concomitant]
     Active Substance: FENTANYL
     Route: 062
     Dates: start: 20180108, end: 20180327
  2. ATEZOLIZUMAB. [Suspect]
     Active Substance: ATEZOLIZUMAB
     Indication: NON-SMALL CELL LUNG CANCER
     Dosage: DATE OF MOST RECENT DOSE OF ATEZOLIZUMAB PRIOR TO AE/SAE ONSET 15/FEB/2018
     Route: 042
     Dates: start: 20180122
  3. AVARIC [Concomitant]
     Route: 060
     Dates: start: 20180108
  4. PREDNISONE. [Concomitant]
     Active Substance: PREDNISONE
     Indication: RESPIRATORY TRACT INFECTION
     Dosage: PILL
     Route: 048
     Dates: start: 20180328
  5. LEVOFLOXACIN. [Concomitant]
     Active Substance: LEVOFLOXACIN
     Indication: RESPIRATORY TRACT INFECTION
     Dosage: PILL
     Route: 048
     Dates: start: 20180328
  6. OXICODONA [Concomitant]
     Active Substance: OXYCODONE
     Dosage: PILL
     Route: 048
     Dates: start: 20180328
  7. OXICODONA [Concomitant]
     Active Substance: OXYCODONE
     Dosage: PILL
     Route: 048
     Dates: start: 20180328
  8. FENTANYL. [Concomitant]
     Active Substance: FENTANYL
     Route: 062
     Dates: start: 20180328

REACTIONS (1)
  - Hyperthyroidism [Not Recovered/Not Resolved]

NARRATIVE: CASE EVENT DATE: 20180308
